FAERS Safety Report 20631773 (Version 4)
Quarter: 2022Q4

REPORT INFORMATION
  Report Type: Report from Study
  Country: US (occurrence: US)
  Receive Date: 20220324
  Receipt Date: 20221031
  Transmission Date: 20230113
  Serious: Yes (Hospitalization, Other)
  Sender: FDA-Public Use
  Company Number: US-ABBVIE-21K-163-3922881-00

PATIENT
  Sex: Male
  Weight: 104.33 kg

DRUGS (6)
  1. HUMIRA [Suspect]
     Active Substance: ADALIMUMAB
     Indication: Crohn^s disease
     Route: 058
     Dates: start: 20210331
  2. HUMIRA [Suspect]
     Active Substance: ADALIMUMAB
     Dosage: CITRATE FREE
     Route: 058
  3. HUMIRA [Suspect]
     Active Substance: ADALIMUMAB
     Route: 058
     Dates: start: 202202, end: 20220302
  4. PFIZER-BIONTECH COVID-19 VACCINE [Concomitant]
     Active Substance: TOZINAMERAN
     Indication: COVID-19 immunisation
     Dosage: TIME INTERVAL: 1 TOTAL: FIRST DOSE
     Route: 030
     Dates: start: 20210427, end: 20210427
  5. PFIZER-BIONTECH COVID-19 VACCINE [Concomitant]
     Active Substance: TOZINAMERAN
     Indication: COVID-19 immunisation
     Dosage: TIME INTERVAL: 1 TOTAL: SECOND DOSE
     Route: 030
     Dates: start: 20210518, end: 20210518
  6. PFIZER-BIONTECH COVID-19 VACCINE [Concomitant]
     Active Substance: TOZINAMERAN
     Indication: COVID-19 immunisation
     Dosage: TIME INTERVAL: 1 TOTAL: THIRD DOSE OR BOOSTER DOSE
     Route: 030
     Dates: start: 20220509, end: 20220509

REACTIONS (24)
  - Hernia [Recovered/Resolved]
  - Ileostomy closure [Unknown]
  - Intestinal operation [Unknown]
  - Hospitalisation [Unknown]
  - Anaemia [Recovering/Resolving]
  - Bile duct stent insertion [Recovering/Resolving]
  - Colostomy closure [Recovered/Resolved]
  - Intestinal resection [Recovered/Resolved]
  - Incision site pain [Unknown]
  - Gastrointestinal sounds abnormal [Recovering/Resolving]
  - Stoma site pain [Unknown]
  - Intestinal cyst [Unknown]
  - Loss of personal independence in daily activities [Unknown]
  - Blood creatinine increased [Recovered/Resolved]
  - Inflammation [Unknown]
  - Blood creatinine increased [Unknown]
  - Haematocrit decreased [Unknown]
  - Flatulence [Unknown]
  - Arthralgia [Recovered/Resolved]
  - Myalgia [Unknown]
  - Fungal infection [Unknown]
  - Crohn^s disease [Recovering/Resolving]
  - Gallbladder operation [Recovered/Resolved]
  - COVID-19 [Unknown]

NARRATIVE: CASE EVENT DATE: 20210101
